FAERS Safety Report 23220503 (Version 3)
Quarter: 2024Q4

REPORT INFORMATION
  Report Type: Report from Study
  Country: BR (occurrence: BR)
  Receive Date: 20231123
  Receipt Date: 20241128
  Transmission Date: 20250115
  Serious: Yes (Other)
  Sender: CELLTRION
  Company Number: BR-CELLTRION INC.-2022BR019473

PATIENT

DRUGS (9)
  1. INFLIXIMAB-DYYB [Suspect]
     Active Substance: INFLIXIMAB-DYYB
     Indication: Crohn^s disease
     Dosage: 5 AMPOULES EVERY 4 WEEKS
     Route: 042
     Dates: start: 20221130
  2. INFLIXIMAB-DYYB [Suspect]
     Active Substance: INFLIXIMAB-DYYB
     Dosage: UNK
     Route: 042
  3. INFLIXIMAB-DYYB [Suspect]
     Active Substance: INFLIXIMAB-DYYB
     Dosage: 5 AMPOULES EVERY 4 WEEKS
     Route: 042
     Dates: start: 20230810
  4. LOSARTAN POTASSIUM [Concomitant]
     Active Substance: LOSARTAN POTASSIUM
     Indication: Hypertension
     Dosage: 2 PILLS A DAY (STARTED MANY YEARS AGO)
     Route: 048
  5. HYDROCHLOROTHIAZIDE [Concomitant]
     Active Substance: HYDROCHLOROTHIAZIDE
     Indication: Hypertension
     Dosage: 1 DF, QD (STARTED MANY YEARS AGO)
     Route: 048
  6. LEVOTHYROXINE SODIUM [Concomitant]
     Active Substance: LEVOTHYROXINE SODIUM
     Indication: Hypothyroidism
     Dosage: 1 DF, QD M(STARTED MANY YEAR AGO)
     Route: 048
  7. VITAMIN C [Concomitant]
     Active Substance: ASCORBIC ACID
     Dosage: 1 PILL A DAY
     Route: 048
  8. VITAMIN B3 [Concomitant]
     Active Substance: NIACIN
     Dosage: ONCE A DAY
     Route: 048
  9. FOLIC ACID [Concomitant]
     Active Substance: FOLIC ACID
     Dosage: UNK, QD
     Route: 048

REACTIONS (13)
  - Oropharyngeal pain [Unknown]
  - Pneumonia [Recovered/Resolved]
  - Immunodeficiency [Unknown]
  - Syncope [Unknown]
  - Sputum discoloured [Unknown]
  - Symptom recurrence [Unknown]
  - Head discomfort [Unknown]
  - Pharyngitis [Unknown]
  - Influenza like illness [Unknown]
  - Tachycardia [Unknown]
  - Infection [Not Recovered/Not Resolved]
  - Intentional dose omission [Unknown]
  - Intentional product use issue [Unknown]

NARRATIVE: CASE EVENT DATE: 20230201
